FAERS Safety Report 6566382-X (Version None)
Quarter: 2010Q1

REPORT INFORMATION
  Report Type: 
  Country: None (occurrence: None)
  Receive Date: 20100202
  Receipt Date: 20100121
  Transmission Date: 20100710
  Serious: Yes (Other)
  Sender: FDA-Public Use
  Company Number: CH-WYE-G02118408

PATIENT
  Age: 36 Year
  Sex: Female
  Weight: 88 kg

DRUGS (2)
  1. EFFEXOR [Suspect]
     Indication: DEPRESSION
     Dosage: FROM JUL-2008 TO AUG-2008 300 MG, FROM AUG-2008 TO SEP-2008 37.5 MG, FROM SEP-2008 TO FEB-2009 75 MG
     Route: 048
  2. HYPERICUM PERFORATUM [Concomitant]
     Dates: start: 20090201

REACTIONS (12)
  - AGITATION [None]
  - CRYING [None]
  - DEPRESSION [None]
  - DIZZINESS [None]
  - DRUG EXPOSURE DURING PREGNANCY [None]
  - DRUG WITHDRAWAL SYNDROME [None]
  - HOT FLUSH [None]
  - INFECTION [None]
  - LISTLESS [None]
  - MOOD SWINGS [None]
  - PREGNANCY INDUCED HYPERTENSION [None]
  - PROLONGED LABOUR [None]
